FAERS Safety Report 19959219 (Version 1)
Quarter: 2021Q4

REPORT INFORMATION
  Report Type: Spontaneous
  Country: US (occurrence: US)
  Receive Date: 20211012
  Receipt Date: 20211012
  Transmission Date: 20220303
  Serious: Yes (Death)
  Sender: FDA-Public Use
  Company Number: None

PATIENT
  Age: 53 Year
  Sex: Male

DRUGS (1)
  1. SILDENAFIL [Suspect]
     Active Substance: SILDENAFIL
     Indication: Chronic left ventricular failure
     Route: 048
     Dates: start: 20210910, end: 20211010

REACTIONS (1)
  - Death [None]

NARRATIVE: CASE EVENT DATE: 20211010
